FAERS Safety Report 6333512-4 (Version None)
Quarter: 2009Q3

REPORT INFORMATION
  Report Type: 
  Country: None (occurrence: None)
  Receive Date: 20090828
  Receipt Date: 20090826
  Transmission Date: 20100115
  Serious: Yes (Hospitalization)
  Sender: FDA-Public Use
  Company Number: US-GENENTECH-289068

PATIENT
  Sex: Male
  Weight: 47.7 kg

DRUGS (6)
  1. RITUXAN [Suspect]
     Indication: HODGKIN'S DISEASE
  2. DOXORUBICIN HCL [Suspect]
     Indication: HODGKIN'S DISEASE
     Dosage: 25 MG/M2, Q2W
     Route: 042
     Dates: start: 20090805
  3. BLEOMYCIN SULFATE [Suspect]
     Indication: HODGKIN'S DISEASE
     Dosage: 10 UNK, Q2W
     Route: 042
     Dates: start: 20090805
  4. VINBLASTINE [Suspect]
     Indication: HODGKIN'S DISEASE
     Dosage: 6 MG/M2, Q2W
     Route: 042
     Dates: start: 20090805
  5. DACARBAZINE [Suspect]
     Indication: HODGKIN'S DISEASE
     Dosage: 375 MG/M2, Q2W
     Route: 042
     Dates: start: 20090805
  6. GABAPENTIN [Concomitant]
     Indication: DRUG USE FOR UNKNOWN INDICATION

REACTIONS (2)
  - LUNG INFECTION [None]
  - NEUTROPHIL COUNT ABNORMAL [None]
